FAERS Safety Report 25246157 (Version 1)
Quarter: 2025Q2

REPORT INFORMATION
  Report Type: Spontaneous
  Country: GB (occurrence: GB)
  Receive Date: 20250428
  Receipt Date: 20250428
  Transmission Date: 20250716
  Serious: Yes (Hospitalization, Other)
  Sender: MYLAN
  Company Number: GB-MHRA-MIDB-8fe7d8c2-f2c8-4365-a366-17341617c220

PATIENT
  Age: 87 Year
  Sex: Male

DRUGS (36)
  1. DOXAZOSIN [Suspect]
     Active Substance: DOXAZOSIN MESYLATE
     Indication: Product used for unknown indication
     Dosage: 2 MILLIGRAM, QD (DOXAZOSIN INCREASED FROM 2MG TO 4MG OD BY GP PRIOR TO ADMISSION)
  2. DOXAZOSIN [Suspect]
     Active Substance: DOXAZOSIN MESYLATE
     Dosage: 2 MILLIGRAM, QD (DOXAZOSIN INCREASED FROM 2MG TO 4MG OD BY GP PRIOR TO ADMISSION)
  3. DOXAZOSIN [Suspect]
     Active Substance: DOXAZOSIN MESYLATE
     Dosage: 2 MILLIGRAM, QD (DOXAZOSIN INCREASED FROM 2MG TO 4MG OD BY GP PRIOR TO ADMISSION)
     Route: 065
  4. DOXAZOSIN [Suspect]
     Active Substance: DOXAZOSIN MESYLATE
     Dosage: 2 MILLIGRAM, QD (DOXAZOSIN INCREASED FROM 2MG TO 4MG OD BY GP PRIOR TO ADMISSION)
     Route: 065
  5. DOXAZOSIN [Suspect]
     Active Substance: DOXAZOSIN MESYLATE
     Dosage: 4 MILLIGRAM, QD (DOXAZOSIN INCREASED FROM 2MG TO 4MG OD BY GP PRIOR TO ADMISSION)
  6. DOXAZOSIN [Suspect]
     Active Substance: DOXAZOSIN MESYLATE
     Dosage: 4 MILLIGRAM, QD (DOXAZOSIN INCREASED FROM 2MG TO 4MG OD BY GP PRIOR TO ADMISSION)
  7. DOXAZOSIN [Suspect]
     Active Substance: DOXAZOSIN MESYLATE
     Dosage: 4 MILLIGRAM, QD (DOXAZOSIN INCREASED FROM 2MG TO 4MG OD BY GP PRIOR TO ADMISSION)
     Route: 065
  8. DOXAZOSIN [Suspect]
     Active Substance: DOXAZOSIN MESYLATE
     Dosage: 4 MILLIGRAM, QD (DOXAZOSIN INCREASED FROM 2MG TO 4MG OD BY GP PRIOR TO ADMISSION)
     Route: 065
  9. SIMVASTATIN [Concomitant]
     Active Substance: SIMVASTATIN
  10. SIMVASTATIN [Concomitant]
     Active Substance: SIMVASTATIN
     Route: 065
  11. SIMVASTATIN [Concomitant]
     Active Substance: SIMVASTATIN
     Route: 065
  12. SIMVASTATIN [Concomitant]
     Active Substance: SIMVASTATIN
  13. PHENYTOIN [Concomitant]
     Active Substance: PHENYTOIN
  14. PHENYTOIN [Concomitant]
     Active Substance: PHENYTOIN
     Route: 065
  15. PHENYTOIN [Concomitant]
     Active Substance: PHENYTOIN
     Route: 065
  16. PHENYTOIN [Concomitant]
     Active Substance: PHENYTOIN
  17. CHOLECALCIFEROL [Concomitant]
     Active Substance: CHOLECALCIFEROL
  18. CHOLECALCIFEROL [Concomitant]
     Active Substance: CHOLECALCIFEROL
     Route: 065
  19. CHOLECALCIFEROL [Concomitant]
     Active Substance: CHOLECALCIFEROL
     Route: 065
  20. CHOLECALCIFEROL [Concomitant]
     Active Substance: CHOLECALCIFEROL
  21. FERROUS SULFATE [Concomitant]
     Active Substance: FERROUS SULFATE
  22. FERROUS SULFATE [Concomitant]
     Active Substance: FERROUS SULFATE
     Route: 065
  23. FERROUS SULFATE [Concomitant]
     Active Substance: FERROUS SULFATE
     Route: 065
  24. FERROUS SULFATE [Concomitant]
     Active Substance: FERROUS SULFATE
  25. CALCIUM CARBONATE\CHOLECALCIFEROL [Concomitant]
     Active Substance: CALCIUM CARBONATE\CHOLECALCIFEROL
  26. CALCIUM CARBONATE\CHOLECALCIFEROL [Concomitant]
     Active Substance: CALCIUM CARBONATE\CHOLECALCIFEROL
     Route: 065
  27. CALCIUM CARBONATE\CHOLECALCIFEROL [Concomitant]
     Active Substance: CALCIUM CARBONATE\CHOLECALCIFEROL
     Route: 065
  28. CALCIUM CARBONATE\CHOLECALCIFEROL [Concomitant]
     Active Substance: CALCIUM CARBONATE\CHOLECALCIFEROL
  29. FELODIPINE [Concomitant]
     Active Substance: FELODIPINE
  30. FELODIPINE [Concomitant]
     Active Substance: FELODIPINE
     Route: 065
  31. FELODIPINE [Concomitant]
     Active Substance: FELODIPINE
     Route: 065
  32. FELODIPINE [Concomitant]
     Active Substance: FELODIPINE
  33. CALCIUM CARBONATE [Concomitant]
     Active Substance: CALCIUM CARBONATE
  34. CALCIUM CARBONATE [Concomitant]
     Active Substance: CALCIUM CARBONATE
     Route: 065
  35. CALCIUM CARBONATE [Concomitant]
     Active Substance: CALCIUM CARBONATE
     Route: 065
  36. CALCIUM CARBONATE [Concomitant]
     Active Substance: CALCIUM CARBONATE

REACTIONS (2)
  - Fall [Unknown]
  - Hypotension [Recovered/Resolved]
